FAERS Safety Report 10357809 (Version 1)
Quarter: 2014Q3

REPORT INFORMATION
  Report Type: Spontaneous
  Country: US (occurrence: US)
  Receive Date: 20140801
  Receipt Date: 20140801
  Transmission Date: 20150326
  Serious: No
  Sender: FDA-Public Use
  Company Number: US-PFIZER INC-2014213569

PATIENT
  Age: 71 Year
  Sex: Female
  Weight: 63.49 kg

DRUGS (3)
  1. ATORVASTATIN CALCIUM. [Suspect]
     Active Substance: ATORVASTATIN CALCIUM
     Indication: BLOOD CHOLESTEROL INCREASED
     Dosage: 80 MG, DAILY
     Dates: start: 2011, end: 2011
  2. SIMVASTATIN. [Suspect]
     Active Substance: SIMVASTATIN
     Dosage: UNK
  3. CRESTOR [Suspect]
     Active Substance: ROSUVASTATIN CALCIUM
     Dosage: UNK

REACTIONS (2)
  - Diarrhoea [Unknown]
  - Drug intolerance [Unknown]

NARRATIVE: CASE EVENT DATE: 2011
